FAERS Safety Report 7508788-8 (Version None)
Quarter: 2011Q2

REPORT INFORMATION
  Report Type: 
  Country: None (occurrence: None)
  Receive Date: 20110527
  Receipt Date: 20110224
  Transmission Date: 20111010
  Serious: No
  Sender: FDA-Public Use
  Company Number: A0915296A

PATIENT
  Age: 54 Year
  Sex: Female

DRUGS (2)
  1. UNKNOWN [Concomitant]
  2. VENTOLIN [Suspect]
     Indication: COUGH
     Dosage: 1PUFF SINGLE DOSE
     Route: 055
     Dates: start: 20110224, end: 20110224

REACTIONS (2)
  - STOMATITIS [None]
  - ORAL PAIN [None]
